FAERS Safety Report 16772580 (Version 1)
Quarter: 2019Q3

REPORT INFORMATION
  Report Type: Spontaneous
  Country: GB (occurrence: GB)
  Receive Date: 20190904
  Receipt Date: 20190904
  Transmission Date: 20191005
  Serious: Yes (Other)
  Sender: FDA-Public Use
  Company Number: GB-009507513-1909GBR000420

PATIENT
  Sex: Female

DRUGS (1)
  1. KEYTRUDA [Suspect]
     Active Substance: PEMBROLIZUMAB
     Indication: PAPILLARY RENAL CELL CARCINOMA
     Dosage: CYCLICAL
     Dates: start: 2017

REACTIONS (1)
  - Bone cancer [Unknown]

NARRATIVE: CASE EVENT DATE: 2019
